FAERS Safety Report 9336754 (Version 1)
Quarter: 2013Q2

REPORT INFORMATION
  Report Type: Spontaneous
  Country: KZ (occurrence: KZ)
  Receive Date: 20130607
  Receipt Date: 20130607
  Transmission Date: 20140414
  Serious: Yes (Other)
  Sender: FDA-Public Use
  Company Number: PHHY2013KZ055708

PATIENT
  Age: 59 Year
  Sex: Female

DRUGS (1)
  1. KETONAL [Suspect]
     Indication: ARTHRALGIA

REACTIONS (4)
  - Osteoarthritis [Unknown]
  - Arthralgia [Unknown]
  - Radiculitis [Unknown]
  - Drug ineffective [Unknown]
